FAERS Safety Report 11488106 (Version 4)
Quarter: 2015Q4

REPORT INFORMATION
  Report Type: Spontaneous
  Country: US (occurrence: US)
  Receive Date: 20150909
  Receipt Date: 20151211
  Transmission Date: 20160304
  Serious: Yes (Hospitalization, Other)
  Sender: FDA-Public Use
  Company Number: US-PFIZER INC-2015295635

PATIENT
  Age: 58 Year
  Sex: Female
  Weight: 73.5 kg

DRUGS (2)
  1. RAPAMUNE [Suspect]
     Active Substance: SIROLIMUS
     Indication: PROPHYLAXIS AGAINST TRANSPLANT REJECTION
     Dosage: 1MG ONE DAY AND 0.5 MG ON SECOND DAY
     Route: 048
  2. RAPAMUNE [Suspect]
     Active Substance: SIROLIMUS
     Dosage: 1 MG, 1X/DAY
     Route: 048

REACTIONS (9)
  - Gastroenteritis viral [Unknown]
  - Epstein-Barr virus infection [Not Recovered/Not Resolved]
  - Red blood cell count abnormal [Unknown]
  - Incorrect dose administered [Unknown]
  - Blindness unilateral [Not Recovered/Not Resolved]
  - Visual acuity reduced [Unknown]
  - Blood cholesterol increased [Unknown]
  - Product use issue [Unknown]
  - Renal impairment [Unknown]

NARRATIVE: CASE EVENT DATE: 2014
